FAERS Safety Report 8607784-7 (Version None)
Quarter: 2012Q3

REPORT INFORMATION
  Report Type: 
  Country: None (occurrence: None)
  Receive Date: 20120821
  Receipt Date: 20120816
  Transmission Date: 20120928
  Serious: Yes (Other)
  Sender: FDA-Public Use
  Company Number: PHHY2012AR071228

PATIENT
  Sex: Female

DRUGS (1)
  1. DIOVAN HCT [Suspect]
     Indication: HYPERTENSION
     Dosage: 1 DF (160 MG VALS AND UNKNOWN HCTZ), DAILY

REACTIONS (4)
  - EYE PAIN [None]
  - PARALYSIS [None]
  - VOMITING [None]
  - LACRIMATION INCREASED [None]
